FAERS Safety Report 5961874-6 (Version None)
Quarter: 2008Q4

REPORT INFORMATION
  Report Type: 
  Country: None (occurrence: None)
  Receive Date: 20081121
  Receipt Date: 20080725
  Transmission Date: 20090506
  Serious: No
  Sender: FDA-Public Use
  Company Number: US-BRISTOL-MYERS SQUIBB COMPANY-14278154

PATIENT
  Age: 65 Year
  Sex: Male
  Weight: 79 kg

DRUGS (1)
  1. AVALIDE [Suspect]
     Indication: HYPERTENSION

REACTIONS (2)
  - BLOOD PRESSURE FLUCTUATION [None]
  - DIZZINESS [None]
